FAERS Safety Report 25716985 (Version 1)
Quarter: 2025Q3

REPORT INFORMATION
  Report Type: Spontaneous
  Country: US (occurrence: None)
  Receive Date: 20250822
  Receipt Date: 20250822
  Transmission Date: 20251020
  Serious: Yes (Hospitalization)
  Sender: FDA-CTU
  Company Number: None

PATIENT
  Age: 73 Year
  Sex: Female

DRUGS (20)
  1. TACROLIMUS [Suspect]
     Active Substance: TACROLIMUS
     Indication: Renal transplant
     Dosage: FREQUENCY : TWICE A DAY;?
     Route: 048
     Dates: start: 20250417
  2. MYCOPHENOLIC ACID [Suspect]
     Active Substance: MYCOPHENOLIC ACID
     Indication: Renal transplant
     Route: 048
     Dates: start: 20250417
  3. VELTASSA [Concomitant]
     Active Substance: PATIROMER
  4. AMIODARONE [Concomitant]
     Active Substance: AMIODARONE
  5. BACTRIM OS (800-160MG) TABLETS [Concomitant]
  6. FLOMAX 0.4MG CAPSULES [Concomitant]
  7. MYCOPHENOLIC 180MC DR TABLETS [Concomitant]
  8. PREDNISONE [Concomitant]
     Active Substance: PREDNISONE
  9. TACROLIMUS 1 MC CAPSULES [Concomitant]
  10. VALCYTE 450MG TABLETS [Concomitant]
  11. LANTUS SOLOSTAR PEN INJ 3ML [Concomitant]
  12. CIPROFLOXACIN [Concomitant]
     Active Substance: CIPROFLOXACIN
  13. DOCUSATE SOD 1 00MG CAPSULES [Concomitant]
  14. PANTOPRAZOLE [Concomitant]
     Active Substance: PANTOPRAZOLE
  15. ITRACONAZOLE 1 00MC CAPSULES [Concomitant]
  16. METOPROLOL ER SUCCINATE 50MG TABS [Concomitant]
  17. METOPROLOL ER SUCCINATE 50MG TABS [Concomitant]
  18. ASPIRIN 81 MG EC LOW DOSE D/F TABS [Concomitant]
  19. ATORVASTATIN [Concomitant]
     Active Substance: ATORVASTATIN
  20. MULTIVITAMIN ADULTS TABLET [Concomitant]

REACTIONS (2)
  - Dysphagia [None]
  - Sepsis [None]

NARRATIVE: CASE EVENT DATE: 20250815
